FAERS Safety Report 20425572 (Version 1)
Quarter: 2022Q1

REPORT INFORMATION
  Report Type: Report from Study
  Country: US (occurrence: US)
  Receive Date: 20220204
  Receipt Date: 20220204
  Transmission Date: 20220423
  Serious: No
  Sender: FDA-Public Use
  Company Number: US-EXELIXIS-CABO-21039424

PATIENT
  Sex: Male

DRUGS (2)
  1. CABOMETYX [Suspect]
     Active Substance: CABOZANTINIB S-MALATE
     Indication: Adrenal gland cancer
     Dosage: 60 MG
     Dates: start: 202102
  2. CABOMETYX [Suspect]
     Active Substance: CABOZANTINIB S-MALATE
     Dosage: 40 MG, QD
     Dates: start: 20210319

REACTIONS (6)
  - Liver function test increased [Unknown]
  - Renal function test abnormal [Unknown]
  - Fatigue [Unknown]
  - Blood pressure increased [Recovering/Resolving]
  - Diarrhoea [Recovered/Resolved]
  - Off label use [Unknown]
